FAERS Safety Report 25855067 (Version 2)
Quarter: 2025Q4

REPORT INFORMATION
  Report Type: Spontaneous
  Country: US (occurrence: US)
  Receive Date: 20250927
  Receipt Date: 20251103
  Transmission Date: 20260118
  Serious: No
  Sender: SANOFI AVENTIS
  Company Number: US-SA-2025SA285088

PATIENT
  Sex: Female
  Weight: 70.7 kg

DRUGS (1)
  1. DUPIXENT [Suspect]
     Active Substance: DUPILUMAB
     Indication: Dermatitis atopic
     Dosage: 300 MG, QOW
     Route: 058

REACTIONS (3)
  - Bronchitis [Unknown]
  - Vertigo [Unknown]
  - Sinusitis [Unknown]

NARRATIVE: CASE EVENT DATE: 20250101
